FAERS Safety Report 8470165-3 (Version None)
Quarter: 2012Q2

REPORT INFORMATION
  Report Type: 
  Country: None (occurrence: None)
  Receive Date: 20120627
  Receipt Date: 20120616
  Transmission Date: 20120825
  Serious: Yes (Other)
  Sender: FDA-Public Use
  Company Number: PT-PAR PHARMACEUTICAL, INC-2012SCPR004460

PATIENT

DRUGS (3)
  1. FLUOXETINE [Suspect]
     Indication: SCHIZOPHRENIA
     Dosage: UNK, UNKNOWN
     Route: 065
  2. CLOZAPINE [Suspect]
     Dosage: 150 MG, / DAY
     Route: 065
  3. CLOZAPINE [Suspect]
     Indication: SCHIZOPHRENIA
     Dosage: 250 MG, / DAY
     Route: 065

REACTIONS (3)
  - SPEECH DISORDER [None]
  - FALL [None]
  - MYOCLONIC EPILEPSY [None]
